FAERS Safety Report 18498365 (Version 1)
Quarter: 2020Q4

REPORT INFORMATION
  Report Type: Report from Study
  Country: NL (occurrence: NL)
  Receive Date: 20201113
  Receipt Date: 20201113
  Transmission Date: 20210114
  Serious: Yes (Hospitalization, Other)
  Sender: FDA-Public Use
  Company Number: NL-AUROBINDO-AUR-APL-2017-19689

PATIENT
  Age: 4 Year
  Sex: Male

DRUGS (4)
  1. VORICONAZOLE. [Suspect]
     Active Substance: VORICONAZOLE
     Indication: ANTIFUNGAL PROPHYLAXIS
     Dosage: UNKNOWN
     Route: 065
  2. CYTARABINE. [Suspect]
     Active Substance: CYTARABINE
     Indication: PRODUCT USED FOR UNKNOWN INDICATION
     Dosage: UNK
     Route: 065
  3. METHOTREXATE. [Interacting]
     Active Substance: METHOTREXATE
     Indication: B PRECURSOR TYPE ACUTE LEUKAEMIA
     Dosage: 3000 MG/M2 TO 5000 MG/M2
     Route: 065
  4. METHOTREXATE. [Interacting]
     Active Substance: METHOTREXATE
     Dosage: 20 MG/M2 TO 30 MG/M2 PER WEEK
     Route: 037

REACTIONS (4)
  - Photosensitivity reaction [Recovered/Resolved]
  - Drug interaction [Recovered/Resolved]
  - Cheilitis [Recovered/Resolved]
  - Rash macular [Unknown]
